FAERS Safety Report 13308214 (Version 10)
Quarter: 2017Q3

REPORT INFORMATION
  Report Type: Report from Study
  Country: CN (occurrence: CN)
  Receive Date: 20170308
  Receipt Date: 20170816
  Transmission Date: 20171127
  Serious: Yes (Hospitalization, Other)
  Sender: FDA-Public Use
  Company Number: CN-GLAXOSMITHKLINE-CN2017GSK030566

PATIENT
  Age: 30 Year
  Sex: Female
  Weight: 73.8 kg

DRUGS (5)
  1. BELIMUMAB [Suspect]
     Active Substance: BELIMUMAB
     Indication: SYSTEMIC LUPUS ERYTHEMATOSUS
     Dosage: 10 MG/KG, CYC
     Route: 042
     Dates: start: 20130823, end: 20140731
  2. MYCOPHENOLATE MOFETIL. [Concomitant]
     Active Substance: MYCOPHENOLATE MOFETIL
     Indication: SYSTEMIC LUPUS ERYTHEMATOSUS
     Dosage: 0.5 G, BID
     Route: 048
     Dates: start: 20150825
  3. BELIMUMAB [Suspect]
     Active Substance: BELIMUMAB
     Indication: SYSTEMIC LUPUS ERYTHEMATOSUS
     Dosage: UNK
     Dates: start: 20140826
  4. PREDNISONE ACETATE [Concomitant]
     Active Substance: PREDNISONE ACETATE
     Indication: SYSTEMIC LUPUS ERYTHEMATOSUS
     Dosage: 8.75 MG, QD
     Route: 048
     Dates: start: 20160823
  5. METHYLPREDNISOLONE TABLETS [Concomitant]
     Active Substance: METHYLPREDNISOLONE
     Indication: SYSTEMIC LUPUS ERYTHEMATOSUS
     Dosage: 7.5 MG, QD
     Route: 048
     Dates: start: 20170303

REACTIONS (1)
  - Pulmonary tuberculosis [Recovered/Resolved]

NARRATIVE: CASE EVENT DATE: 20170223
